FAERS Safety Report 6059402-2 (Version None)
Quarter: 2009Q1

REPORT INFORMATION
  Report Type: 
  Country: None (occurrence: None)
  Receive Date: 20090130
  Receipt Date: 20090121
  Transmission Date: 20090719
  Serious: Yes (Hospitalization)
  Sender: FDA-Public Use
  Company Number: FR-EISAI MEDIAL RESEARCH-E3810-02500-SPO-FR

PATIENT
  Sex: Male

DRUGS (3)
  1. RABEPRAZOLE SODIUM [Suspect]
     Route: 048
     Dates: end: 20081202
  2. DIOVAN HCT [Suspect]
     Dosage: UNKNOWN
     Route: 048
  3. CRESTOR [Suspect]
     Indication: BLOOD CHOLESTEROL
     Route: 048

REACTIONS (2)
  - ECZEMA [None]
  - EXFOLIATIVE RASH [None]
